FAERS Safety Report 15169927 (Version 3)
Quarter: 2018Q3

REPORT INFORMATION
  Report Type: Spontaneous
  Country: US (occurrence: US)
  Receive Date: 20180720
  Receipt Date: 20180808
  Transmission Date: 20181010
  Serious: No
  Sender: FDA-Public Use
  Company Number: US-TEVA-2018-US-926734

PATIENT
  Sex: Male

DRUGS (1)
  1. SUCRALFATE. [Suspect]
     Active Substance: SUCRALFATE
     Route: 048
     Dates: start: 201607

REACTIONS (3)
  - Product solubility abnormal [Unknown]
  - Abdominal discomfort [Unknown]
  - Product taste abnormal [Unknown]
